FAERS Safety Report 9163043 (Version 3)
Quarter: 2013Q3

REPORT INFORMATION
  Report Type: Report from Study
  Country: FR (occurrence: FR)
  Receive Date: 20130314
  Receipt Date: 20130705
  Transmission Date: 20140515
  Serious: Yes (Hospitalization)
  Sender: FDA-Public Use
  Company Number: FR-ROCHE-1156810

PATIENT
  Age: 80 Year
  Sex: Female
  Weight: 65 kg

DRUGS (7)
  1. PERTUZUMAB [Suspect]
     Indication: BREAST CANCER
     Dosage: MAINTAINENCE DOSE
     Route: 042
     Dates: start: 20120913, end: 20121116
  2. PERTUZUMAB [Suspect]
     Dosage: LOADING DOSE
     Route: 042
     Dates: start: 20120913
  3. TRASTUZUMAB [Suspect]
     Indication: BREAST CANCER
     Dosage: MAINTAINENCE DOSE
     Route: 042
     Dates: start: 20120913, end: 20121116
  4. TRASTUZUMAB [Suspect]
     Dosage: LOADING DOSE
     Route: 042
     Dates: start: 20120913
  5. VINORELBINE [Suspect]
     Indication: BREAST CANCER
     Dosage: LAST DOSE PRIOR TO SAE 23/NOV/2012
     Route: 042
     Dates: start: 20120913, end: 20121123
  6. ARANESP [Concomitant]
     Dosage: FREQUENCY: EVERY 3
     Route: 065
     Dates: start: 20121025
  7. INNOHEP [Concomitant]
     Route: 065
     Dates: start: 20121110

REACTIONS (3)
  - Interstitial lung disease [Recovered/Resolved]
  - Pulmonary embolism [Recovered/Resolved]
  - Venous thrombosis [Recovered/Resolved]
